FAERS Safety Report 9632404 (Version 2)
Quarter: 2013Q4

REPORT INFORMATION
  Report Type: Report from Study
  Country: US (occurrence: US)
  Receive Date: 20131018
  Receipt Date: 20131210
  Transmission Date: 20140711
  Serious: Yes (Hospitalization, Other)
  Sender: FDA-Public Use
  Company Number: US-ALEXION PHARMACEUTICALS INC.-A201302692

PATIENT
  Sex: Female
  Weight: 49.9 kg

DRUGS (2)
  1. SOLIRIS [Suspect]
     Indication: HAEMOLYTIC URAEMIC SYNDROME
     Dosage: 900 MG, QW
     Route: 042
     Dates: start: 20121221, end: 201301
  2. SOLIRIS [Suspect]
     Dosage: 1200 MG, Q2W
     Route: 042
     Dates: start: 20130118, end: 201306

REACTIONS (4)
  - Dyspnoea [Unknown]
  - Fluid retention [Unknown]
  - Dialysis [Unknown]
  - Bone cancer [Unknown]
